FAERS Safety Report 5286068-1 (Version None)
Quarter: 2007Q2

REPORT INFORMATION
  Report Type: 
  Country: None (occurrence: None)
  Receive Date: 20070404
  Receipt Date: 20070322
  Transmission Date: 20071010
  Serious: Yes (Disabling)
  Sender: FDA-Public Use
  Company Number: PHBS2007JP02430

PATIENT
  Age: 55 Year
  Sex: Female

DRUGS (1)
  1. LIORESAL [Suspect]
     Indication: PAIN IN EXTREMITY
     Dosage: 10 MG/DAY
     Route: 048
     Dates: start: 20070202, end: 20070204

REACTIONS (4)
  - DISORIENTATION [None]
  - DYSKINESIA [None]
  - HYPERVENTILATION [None]
  - PAIN [None]
